FAERS Safety Report 20682937 (Version 1)
Quarter: 2022Q2

REPORT INFORMATION
  Report Type: Spontaneous
  Country: US (occurrence: US)
  Receive Date: 20220407
  Receipt Date: 20220407
  Transmission Date: 20220721
  Serious: No
  Sender: FDA-Public Use
  Company Number: US-TEVA-2022-US-2018131

PATIENT
  Sex: Male

DRUGS (1)
  1. ATORVASTATIN CALCIUM [Suspect]
     Active Substance: ATORVASTATIN CALCIUM
     Dosage: 40 MG
     Route: 065

REACTIONS (4)
  - Product contamination physical [Unknown]
  - Fatigue [Unknown]
  - Pyrexia [Unknown]
  - Feeling abnormal [Unknown]
